FAERS Safety Report 13645630 (Version 23)
Quarter: 2019Q3

REPORT INFORMATION
  Report Type: Report from Study
  Country: CA (occurrence: CA)
  Receive Date: 20170613
  Receipt Date: 20190924
  Transmission Date: 20191004
  Serious: Yes (Hospitalization, Other)
  Sender: FDA-Public Use
  Company Number: CA-ROCHE-1391698

PATIENT
  Age: 64 Year
  Sex: Female
  Weight: 87 kg

DRUGS (20)
  1. AMLODIPINE [Concomitant]
     Active Substance: AMLODIPINE BESYLATE
     Route: 065
  2. FLUOXETINE [Concomitant]
     Active Substance: FLUOXETINE HYDROCHLORIDE
     Route: 065
  3. ACTEMRA [Suspect]
     Active Substance: TOCILIZUMAB
     Route: 042
     Dates: start: 20150513
  4. ACTEMRA [Suspect]
     Active Substance: TOCILIZUMAB
     Route: 042
     Dates: start: 20161110
  5. ACTEMRA [Suspect]
     Active Substance: TOCILIZUMAB
     Route: 042
     Dates: start: 20170310
  6. ACTEMRA [Suspect]
     Active Substance: TOCILIZUMAB
     Route: 042
     Dates: start: 20150924
  7. METHOTREXATE. [Concomitant]
     Active Substance: METHOTREXATE
     Route: 065
  8. ACTEMRA [Suspect]
     Active Substance: TOCILIZUMAB
     Indication: RHEUMATOID ARTHRITIS
     Route: 042
     Dates: start: 20140331
  9. ACTEMRA [Suspect]
     Active Substance: TOCILIZUMAB
     Route: 042
     Dates: start: 20140916
  10. ACTEMRA [Suspect]
     Active Substance: TOCILIZUMAB
     Route: 042
     Dates: start: 20160923
  11. TYLENOL [Suspect]
     Active Substance: ACETAMINOPHEN
     Indication: PAIN
     Route: 065
  12. SANDOSTATIN [Concomitant]
     Active Substance: OCTREOTIDE ACETATE
     Route: 065
  13. PLAQUENIL [Concomitant]
     Active Substance: HYDROXYCHLOROQUINE SULFATE
     Route: 065
  14. FOLIC ACID. [Concomitant]
     Active Substance: FOLIC ACID
     Route: 065
  15. ACTEMRA [Suspect]
     Active Substance: TOCILIZUMAB
     Route: 042
     Dates: start: 20140819
  16. ACTEMRA [Suspect]
     Active Substance: TOCILIZUMAB
     Route: 042
     Dates: start: 20190911
  17. PREVACID [Concomitant]
     Active Substance: LANSOPRAZOLE
  18. SULFATRIM [Concomitant]
     Active Substance: SULFAMETHOXAZOLE\TRIMETHOPRIM
  19. FOSINOPRIL [Concomitant]
     Active Substance: FOSINOPRIL
     Route: 065
  20. LANSOPRAZOLE. [Concomitant]
     Active Substance: LANSOPRAZOLE
     Route: 065

REACTIONS (54)
  - Pneumonia [Recovered/Resolved]
  - Infusion related reaction [Recovered/Resolved]
  - Fall [Unknown]
  - Oxygen saturation decreased [Unknown]
  - Back pain [Not Recovered/Not Resolved]
  - Product use issue [Unknown]
  - Feeling cold [Not Recovered/Not Resolved]
  - Weight increased [Not Recovered/Not Resolved]
  - Nasal congestion [Unknown]
  - Drug ineffective [Unknown]
  - Urinary tract infection [Unknown]
  - Cataract [Unknown]
  - Renal impairment [Unknown]
  - Fatigue [Unknown]
  - Pyrexia [Not Recovered/Not Resolved]
  - Drug ineffective [Unknown]
  - Blood pressure systolic increased [Unknown]
  - Bladder spasm [Unknown]
  - Heart rate decreased [Unknown]
  - Kidney infection [Unknown]
  - Pain [Recovered/Resolved]
  - Arthralgia [Not Recovered/Not Resolved]
  - Rhinorrhoea [Unknown]
  - Thermal burn [Unknown]
  - Chest pain [Not Recovered/Not Resolved]
  - Gastrooesophageal reflux disease [Unknown]
  - Pain [Not Recovered/Not Resolved]
  - Skin ulcer [Unknown]
  - Joint swelling [Recovering/Resolving]
  - Cough [Unknown]
  - Weight increased [Unknown]
  - Weight decreased [Unknown]
  - Blood pressure increased [Unknown]
  - Blood pressure diastolic decreased [Unknown]
  - Pain in extremity [Not Recovered/Not Resolved]
  - Wrist fracture [Recovered/Resolved]
  - Bladder prolapse [Not Recovered/Not Resolved]
  - Chest discomfort [Unknown]
  - Abdominal pain [Not Recovered/Not Resolved]
  - Back injury [Unknown]
  - Heart rate decreased [Unknown]
  - Oropharyngeal pain [Unknown]
  - Off label use [Unknown]
  - Sneezing [Recovered/Resolved]
  - Rash [Recovering/Resolving]
  - Nasopharyngitis [Not Recovered/Not Resolved]
  - Headache [Not Recovered/Not Resolved]
  - Dyspnoea [Not Recovered/Not Resolved]
  - Throat irritation [Unknown]
  - Body temperature decreased [Unknown]
  - Blood pressure fluctuation [Unknown]
  - Disability assessment scale score increased [Unknown]
  - Rheumatoid arthritis [Not Recovered/Not Resolved]
  - Malaise [Unknown]

NARRATIVE: CASE EVENT DATE: 201404
